FAERS Safety Report 17416527 (Version 4)
Quarter: 2020Q1

REPORT INFORMATION
  Report Type: Report from Study
  Country: US (occurrence: US)
  Receive Date: 20200214
  Receipt Date: 20200326
  Transmission Date: 20200409
  Serious: Yes (Other)
  Sender: FDA-Public Use
  Company Number: US-PFIZER INC-2019444411

PATIENT
  Age: 65 Year
  Sex: Female

DRUGS (3)
  1. FASLODEX [Suspect]
     Active Substance: FULVESTRANT
     Indication: OESTROGEN RECEPTOR POSITIVE BREAST CANCER
     Dosage: UNK, CYCLIC (Q ((EVERY) 28 DAYS)
     Dates: start: 20191011
  2. IBRANCE [Suspect]
     Active Substance: PALBOCICLIB
     Indication: BREAST CANCER METASTATIC
     Dosage: 125 MG, CYCLIC (125 MG ONCE DAILY 21 DAYS OF A 28 DAY CYCLE/21 DAYS ON, 7 DAYS OFF)
     Route: 048
     Dates: start: 20191011, end: 20191031
  3. IBRANCE [Suspect]
     Active Substance: PALBOCICLIB
     Dosage: 125 MG, CYCLIC (ONCE DAILY, 21 DAYS ON, 7 DAYS OFF)
     Route: 048
     Dates: start: 20191115, end: 20200227

REACTIONS (12)
  - Nausea [Recovered/Resolved]
  - Arthralgia [Unknown]
  - Leukopenia [Unknown]
  - Fatigue [Recovered/Resolved]
  - Bone pain [Unknown]
  - Neutropenia [Not Recovered/Not Resolved]
  - Diarrhoea [Unknown]
  - Tumour marker increased [Not Recovered/Not Resolved]
  - Bone marrow failure [Unknown]
  - Somnolence [Unknown]
  - Arthralgia [Unknown]
  - White blood cell count decreased [Unknown]

NARRATIVE: CASE EVENT DATE: 2019
